FAERS Safety Report 23371608 (Version 2)
Quarter: 2024Q1

REPORT INFORMATION
  Report Type: Spontaneous
  Country: MY (occurrence: MY)
  Receive Date: 20240105
  Receipt Date: 20240111
  Transmission Date: 20240410
  Serious: Yes (Death, Life-Threatening, Other)
  Sender: FDA-Public Use
  Company Number: MY-PFIZER INC-PV202300164132

PATIENT
  Age: 66 Year
  Sex: Female

DRUGS (1)
  1. VIZIMPRO [Suspect]
     Active Substance: DACOMITINIB
     Indication: Non-small cell lung cancer
     Dosage: 2 DAYS OF 15MG THEN NEXT DAY OF 30MG, AND CONTINUE THAT SCHEDULE
     Route: 048
     Dates: start: 20200514, end: 20230921

REACTIONS (2)
  - Second primary malignancy [Fatal]
  - Neuroendocrine carcinoma [Fatal]

NARRATIVE: CASE EVENT DATE: 20230921
